FAERS Safety Report 11008655 (Version 1)
Quarter: 2015Q2

REPORT INFORMATION
  Report Type: Spontaneous
  Country: US (occurrence: US)
  Receive Date: 20150410
  Receipt Date: 20150410
  Transmission Date: 20150821
  Serious: No
  Sender: FDA-Public Use
  Company Number: US-ASTRAZENECA-2015SE27672

PATIENT
  Age: 93 Year
  Sex: Female
  Weight: 49.9 kg

DRUGS (6)
  1. QUETIAPINE FUMARATE. [Suspect]
     Active Substance: QUETIAPINE FUMARATE
     Indication: VASCULAR DEMENTIA
     Route: 048
     Dates: start: 2012, end: 2014
  2. PLAVIX [Concomitant]
     Active Substance: CLOPIDOGREL BISULFATE
  3. SENNA [Concomitant]
     Active Substance: SENNA LEAF\SENNOSIDES\SENNOSIDES A AND B
  4. QUETIAPINE FUMARATE. [Suspect]
     Active Substance: QUETIAPINE FUMARATE
     Indication: VASCULAR DEMENTIA
     Route: 048
     Dates: start: 2015
  5. TRIAMPTERINE [Concomitant]
  6. PREDNISONE. [Concomitant]
     Active Substance: PREDNISONE

REACTIONS (11)
  - Dementia [Not Recovered/Not Resolved]
  - Adverse event [Unknown]
  - Tremor [Not Recovered/Not Resolved]
  - Somnolence [Unknown]
  - Dyskinesia [Unknown]
  - Hallucination [Not Recovered/Not Resolved]
  - Thyroid hormones increased [Unknown]
  - Body temperature fluctuation [Unknown]
  - Excessive eye blinking [Unknown]
  - Product use issue [Not Recovered/Not Resolved]
  - Hyperhidrosis [Not Recovered/Not Resolved]

NARRATIVE: CASE EVENT DATE: 2012
